FAERS Safety Report 23477004 (Version 1)
Quarter: 2024Q1

REPORT INFORMATION
  Report Type: Spontaneous
  Country: JP (occurrence: JP)
  Receive Date: 20240204
  Receipt Date: 20240204
  Transmission Date: 20240410
  Serious: No
  Sender: FDA-Public Use
  Company Number: JP-TAKEDA-2023TJP008293

PATIENT
  Age: 6 Decade
  Sex: Female
  Weight: 52 kg

DRUGS (3)
  1. CABOMETYX [Suspect]
     Active Substance: CABOZANTINIB S-MALATE
     Indication: Renal cell carcinoma
     Dosage: 40 MG, QD
     Route: 048
  2. CABOMETYX [Suspect]
     Active Substance: CABOZANTINIB S-MALATE
     Dosage: 20 MG, QD
     Route: 048
  3. FEMARA [Concomitant]
     Active Substance: LETROZOLE
     Dosage: UNK
     Route: 048

REACTIONS (2)
  - Blood creatine phosphokinase increased [Unknown]
  - Hepatic function abnormal [Unknown]
